FAERS Safety Report 6027790-9 (Version None)
Quarter: 2009Q1

REPORT INFORMATION
  Report Type: 
  Country: None (occurrence: None)
  Receive Date: 20090105
  Receipt Date: 20081224
  Transmission Date: 20090719
  Serious: Yes (Other)
  Sender: FDA-Public Use
  Company Number: US-RB-003941-08

PATIENT
  Sex: Female

DRUGS (3)
  1. SUBUTEX [Suspect]
     Route: 060
     Dates: start: 20080910, end: 20080921
  2. SUBOXONE [Suspect]
     Route: 060
     Dates: start: 20080811, end: 20080909
  3. SUBOXONE [Suspect]
     Route: 060
     Dates: start: 20080922

REACTIONS (3)
  - DRUG EXPOSURE DURING PREGNANCY [None]
  - DRUG WITHDRAWAL SYNDROME [None]
  - SELECTIVE ABORTION [None]
